FAERS Safety Report 20036408 (Version 1)
Quarter: 2021Q4

REPORT INFORMATION
  Report Type: Spontaneous
  Country: BE (occurrence: BE)
  Receive Date: 20211105
  Receipt Date: 20211105
  Transmission Date: 20220303
  Serious: Yes (Disabling)
  Sender: FDA-Public Use
  Company Number: None

PATIENT
  Age: 54 Year
  Sex: Female
  Weight: 62 kg

DRUGS (1)
  1. TOBRADEX [Suspect]
     Active Substance: DEXAMETHASONE\TOBRAMYCIN
     Indication: Vitrectomy
     Dosage: UNK (1 DR.6X PER DAG GEDURENDE 2 WEKEN+ 1 WEEK 4X P/D + 15/1/21 T/M 29/1/21: 3 DRUPPELS PER DAG (NIE
     Route: 047
     Dates: start: 20201225

REACTIONS (2)
  - Eye pain [Recovering/Resolving]
  - Eyelid pain [Recovering/Resolving]
